FAERS Safety Report 10547528 (Version 1)
Quarter: 2014Q4

REPORT INFORMATION
  Report Type: Spontaneous
  Country: GB (occurrence: GB)
  Receive Date: 20141028
  Receipt Date: 20141028
  Transmission Date: 20150529
  Serious: Yes (Other)
  Sender: FDA-Public Use
  Company Number: GB-ACCORD-026593

PATIENT
  Age: 49 Year
  Sex: Female
  Weight: 46.71 kg

DRUGS (2)
  1. ESCITALOPRAM [Suspect]
     Active Substance: ESCITALOPRAM OXALATE
     Indication: DEPRESSION
  2. OMEPRAZOLE. [Interacting]
     Active Substance: OMEPRAZOLE
     Indication: GASTRITIS
     Dates: start: 20140820, end: 20141007

REACTIONS (2)
  - Serotonin syndrome [Recovering/Resolving]
  - Labelled drug-drug interaction medication error [Unknown]
